FAERS Safety Report 10182300 (Version 1)
Quarter: 2014Q2

REPORT INFORMATION
  Report Type: Report from Study
  Country: US (occurrence: US)
  Receive Date: 20140520
  Receipt Date: 20140520
  Transmission Date: 20141212
  Serious: Yes (Other)
  Sender: FDA-Public Use
  Company Number: US-ROCHE-1401534

PATIENT
  Sex: Female
  Weight: 46.1 kg

DRUGS (1)
  1. NUTROPIN AQ [Suspect]
     Indication: BODY HEIGHT BELOW NORMAL
     Route: 058

REACTIONS (3)
  - Renal function test abnormal [Unknown]
  - Tendon pain [Unknown]
  - Growth retardation [Unknown]
